FAERS Safety Report 25004525 (Version 2)
Quarter: 2025Q1

REPORT INFORMATION
  Report Type: Spontaneous
  Country: US (occurrence: US)
  Receive Date: 20250224
  Receipt Date: 20250302
  Transmission Date: 20250408
  Serious: No
  Sender: SANOFI AVENTIS
  Company Number: US-SANOFI-02416141

PATIENT
  Age: 63 Year
  Sex: Male

DRUGS (1)
  1. LANTUS SOLOSTAR [Suspect]
     Active Substance: INSULIN GLARGINE
     Indication: Type 1 diabetes mellitus
     Dosage: 23 IU, QD
     Route: 065

REACTIONS (5)
  - Injection site haemorrhage [Unknown]
  - Device defective [Unknown]
  - Nasopharyngitis [Unknown]
  - Influenza [Unknown]
  - Somnolence [Unknown]
